FAERS Safety Report 6370754-6 (Version None)
Quarter: 2009Q3

REPORT INFORMATION
  Report Type: 
  Country: None (occurrence: None)
  Receive Date: 20090923
  Receipt Date: 20071115
  Transmission Date: 20100115
  Serious: Yes (Other)
  Sender: FDA-Public Use
  Company Number: US-ASTRAZENECA-2006UW25193

PATIENT
  Age: 16692 Day
  Sex: Male
  Weight: 90.7 kg

DRUGS (46)
  1. SEROQUEL [Suspect]
     Indication: BIPOLAR DISORDER
     Route: 048
     Dates: start: 19970101, end: 20020101
  2. SEROQUEL [Suspect]
     Indication: SCHIZOPHRENIA
     Route: 048
     Dates: start: 19970101, end: 20020101
  3. SEROQUEL [Suspect]
     Indication: DEPRESSION
     Route: 048
     Dates: start: 19970101, end: 20020101
  4. SEROQUEL [Suspect]
     Dosage: 25-600 MG
     Route: 048
     Dates: start: 19991013
  5. SEROQUEL [Suspect]
     Dosage: 25-600 MG
     Route: 048
     Dates: start: 19991013
  6. SEROQUEL [Suspect]
     Dosage: 25-600 MG
     Route: 048
     Dates: start: 19991013
  7. ABILIFY [Concomitant]
     Route: 048
  8. CLOZARIL [Concomitant]
     Route: 048
  9. NAVANE [Concomitant]
     Route: 048
  10. THORAZINE [Concomitant]
  11. TRILIFON [Concomitant]
     Route: 048
  12. ZYPREXA [Concomitant]
     Route: 048
  13. ZOLOFT [Concomitant]
     Dosage: 50 MG AT NIGHT, 100 MG TWO TIMES A DAY, 300 MG DAILY
  14. EFFEXOR [Concomitant]
  15. RIBAVIRIN [Concomitant]
  16. DEPAKOTE [Concomitant]
  17. TOPAMAX [Concomitant]
     Dosage: 25 MG TWO AT NIGHT, 50 MG DAILY, 100 MG DAILY
  18. MELATONIN [Concomitant]
  19. NEURONTIN [Concomitant]
  20. ALEVE [Concomitant]
  21. PERCOCET [Concomitant]
  22. TRIAVIL [Concomitant]
  23. ROBAXIN [Concomitant]
     Indication: MUSCLE SPASMS
     Route: 048
  24. PROZAC [Concomitant]
  25. KLONOPIN [Concomitant]
  26. CYMBALTA [Concomitant]
  27. DIAZEPAM [Concomitant]
     Route: 048
  28. LORTAB [Concomitant]
  29. ULTRAM [Concomitant]
     Route: 048
  30. FLEXERIL [Concomitant]
     Indication: MUSCLE RELAXANT THERAPY
  31. DICLOFENAC [Concomitant]
  32. NIZORAL [Concomitant]
     Dosage: 2% TWO TIMES A WEEK
  33. REMERON [Concomitant]
     Route: 048
  34. VIAGRA [Concomitant]
     Dosage: 50 MG AS DIRECTED
  35. CONCERTA [Concomitant]
     Route: 048
  36. DEXAMETHASONE [Concomitant]
  37. DURAGESIC-100 [Concomitant]
  38. PREVACID [Concomitant]
  39. LITHIUM [Concomitant]
  40. COLACE [Concomitant]
     Indication: CONSTIPATION
  41. INTRON A [Concomitant]
     Dosage: 3 ML IU/0.5 ML VIAL, EVERY OTHER DAY FOR ONE MONTH
     Route: 058
  42. PROMETHAZINE [Concomitant]
     Route: 030
  43. OXYCODONE [Concomitant]
  44. TRAZODONE [Concomitant]
  45. IBUPROFEN [Concomitant]
  46. PROVENTIL-HFA [Concomitant]
     Dosage: 2 PUFFS EVERY 4-6 HOURS

REACTIONS (1)
  - PANCREATITIS [None]
